FAERS Safety Report 5108205-1 (Version None)
Quarter: 2006Q3

REPORT INFORMATION
  Report Type: 
  Country: None (occurrence: None)
  Receive Date: 20060915
  Receipt Date: 20060904
  Transmission Date: 20061208
  Serious: Yes (Hospitalization, Other)
  Sender: FDA-Public Use
  Company Number: 2006-DE-04657GD

PATIENT
  Age: 52 Year
  Sex: Male

DRUGS (6)
  1. PREDNISONE TAB [Suspect]
     Indication: WEGENER'S GRANULOMATOSIS
     Dosage: 60 MG, PO
     Route: 048
  2. GRANULOCYTE COLONY STIMULATING FACTOR (GRANULOCYTE COLONY STIMULATING [Suspect]
     Indication: NEUTROPENIA
  3. ANTICOAGULANTS (OTHER HAEMATOLOGICAL AGENTS) [Suspect]
     Indication: DEEP VEIN THROMBOSIS
  4. CYCLOPHOSPHAMIDE [Suspect]
     Indication: WEGENER'S GRANULOMATOSIS
     Dosage: 1500 MG (ONE DOSE), IV
     Route: 042
  5. SOLU-MEDROL [Suspect]
     Indication: WEGENER'S GRANULOMATOSIS
     Dosage: 1 G (2 CYCLES OF ^PULSE ^ (EVERY 3 WEEKS)), IV; SEE IMAGE
     Route: 042
  6. METHOTREXATE [Concomitant]

REACTIONS (46)
  - ABASIA [None]
  - ACUTE MYOCARDIAL INFARCTION [None]
  - ANAEMIA [None]
  - ASTHENIA [None]
  - BACTERIAL INFECTION [None]
  - BLADDER CANCER [None]
  - BLOOD PRESSURE DIASTOLIC DECREASED [None]
  - BUNDLE BRANCH BLOCK LEFT [None]
  - BURNING SENSATION [None]
  - CHOLELITHIASIS [None]
  - CORONARY ARTERY DISEASE [None]
  - CUSHINGOID [None]
  - CYANOSIS [None]
  - CYSTITIS HAEMORRHAGIC [None]
  - DEAFNESS NEUROSENSORY [None]
  - DEEP VEIN THROMBOSIS [None]
  - DIABETES MELLITUS [None]
  - DRY GANGRENE [None]
  - DYSAESTHESIA [None]
  - EAR PAIN [None]
  - FIBULA FRACTURE [None]
  - FLUSHING [None]
  - HAEMATURIA [None]
  - HAEMOPTYSIS [None]
  - HYPOAESTHESIA [None]
  - INFARCTION [None]
  - LEG AMPUTATION [None]
  - LEUKOCYTOCLASTIC VASCULITIS [None]
  - LIVEDO RETICULARIS [None]
  - MALAISE [None]
  - MUSCLE DISORDER [None]
  - MUSCULOSKELETAL PAIN [None]
  - NEUTROPENIA [None]
  - OSTEOPOROSIS [None]
  - PERIPHERAL ISCHAEMIA [None]
  - PERIPHERAL SENSORIMOTOR NEUROPATHY [None]
  - PHARYNGOLARYNGEAL PAIN [None]
  - PLEURAL EFFUSION [None]
  - POST PROCEDURAL COMPLICATION [None]
  - PULMONARY OEDEMA [None]
  - RESPIRATORY DISTRESS [None]
  - RHINITIS [None]
  - SEPSIS [None]
  - SPLINTER HAEMORRHAGES [None]
  - URINARY TRACT OBSTRUCTION [None]
  - VASCULITIS [None]
